FAERS Safety Report 5784851-7 (Version None)
Quarter: 2008Q2

REPORT INFORMATION
  Report Type: 
  Country: None (occurrence: None)
  Receive Date: 20080624
  Receipt Date: 20070418
  Transmission Date: 20081010
  Serious: No
  Sender: FDA-Public Use
  Company Number: US-ASTRAZENECA-2007UW07735

PATIENT
  Age: 4 Year
  Sex: Female

DRUGS (8)
  1. PULMICORT RESPULES [Suspect]
     Indication: ASTHMA
     Route: 055
  2. PREDNISONE TAB [Suspect]
  3. NASACORT [Concomitant]
  4. SINGULAIR [Concomitant]
  5. DUONEB [Concomitant]
  6. ENULOSE [Concomitant]
  7. MIRALAX [Concomitant]
  8. MINERAL OIL [Concomitant]

REACTIONS (1)
  - SWELLING FACE [None]
